FAERS Safety Report 4614665-2 (Version None)
Quarter: 2005Q2

REPORT INFORMATION
  Report Type: 
  Country: None (occurrence: None)
  Receive Date: 20050311
  Receipt Date: 20050118
  Transmission Date: 20051028
  Serious: No
  Sender: FDA-Public Use
  Company Number: 2005-BP-00789BP

PATIENT
  Age: 91 Year
  Sex: Female

DRUGS (2)
  1. SPIRIVA [Suspect]
     Indication: ASTHMA
     Dosage: 18 MCG  (18 MCG), IH
     Route: 055
     Dates: start: 20041201, end: 20041201
  2. OCUVITE (OCUVITE) [Concomitant]

REACTIONS (1)
  - DYSGEUSIA [None]
